FAERS Safety Report 19837379 (Version 1)
Quarter: 2021Q3

REPORT INFORMATION
  Report Type: Spontaneous
  Country: US (occurrence: US)
  Receive Date: 20210915
  Receipt Date: 20210915
  Transmission Date: 20211014
  Serious: No
  Sender: FDA-Public Use
  Company Number: US-GW PHARMA-202109USGW04383

PATIENT

DRUGS (2)
  1. EPIDIOLEX [Suspect]
     Active Substance: CANNABIDIOL
     Indication: HYPERPITUITARISM
     Dosage: 350 MILLIGRAM, QD (150 MILLIGRAM EVERY MORNING AND 200 MILLIGRAM EVERY EVENING AT BEDTIME)
     Route: 048
     Dates: start: 201903
  2. EPIDIOLEX [Suspect]
     Active Substance: CANNABIDIOL
     Indication: PRECOCIOUS PUBERTY

REACTIONS (2)
  - Weight abnormal [Unknown]
  - Product use in unapproved indication [Unknown]
